FAERS Safety Report 7347176-4 (Version None)
Quarter: 2011Q1

REPORT INFORMATION
  Report Type: 
  Country: None (occurrence: None)
  Receive Date: 20110311
  Receipt Date: 20110308
  Transmission Date: 20110831
  Serious: Yes (Other)
  Sender: FDA-Public Use
  Company Number: US-PFIZER INC-2011015190

PATIENT
  Sex: Female
  Weight: 84.354 kg

DRUGS (1)
  1. CHANTIX [Suspect]
     Indication: SMOKING CESSATION THERAPY
     Dosage: UNK
     Route: 048
     Dates: start: 20090901

REACTIONS (5)
  - BLISTER [None]
  - DERMATITIS [None]
  - PAIN IN EXTREMITY [None]
  - OPEN WOUND [None]
  - SKIN EXFOLIATION [None]
